FAERS Safety Report 10405452 (Version 1)
Quarter: 2014Q3

REPORT INFORMATION
  Report Type: Spontaneous
  Country: US (occurrence: None)
  Receive Date: 20140821
  Receipt Date: 20140821
  Transmission Date: 20150326
  Serious: Yes (Hospitalization)
  Sender: FDA-Public Use
  Company Number: None

PATIENT
  Age: 60 Year
  Sex: Female
  Weight: 134 kg

DRUGS (3)
  1. CARBOPLATIN. [Suspect]
     Active Substance: CARBOPLATIN
  2. NEULASTA [Suspect]
     Active Substance: PEGFILGRASTIM
  3. TAXOL [Suspect]
     Active Substance: PACLITAXEL

REACTIONS (14)
  - Erythema [None]
  - Diarrhoea [None]
  - Body temperature increased [None]
  - Paraesthesia oral [None]
  - Dehydration [None]
  - White blood cell count decreased [None]
  - Platelet count decreased [None]
  - Tongue coated [None]
  - Swelling face [None]
  - Abdominal pain [None]
  - Nausea [None]
  - Haemoglobin decreased [None]
  - Blood bilirubin increased [None]
  - Pain [None]

NARRATIVE: CASE EVENT DATE: 20140812
